FAERS Safety Report 8206683-2 (Version None)
Quarter: 2012Q1

REPORT INFORMATION
  Report Type: 
  Country: None (occurrence: None)
  Receive Date: 20120314
  Receipt Date: 20120305
  Transmission Date: 20120608
  Serious: No
  Sender: FDA-Public Use
  Company Number: US-BIOGENIDEC-2011BI042859

PATIENT
  Sex: Female

DRUGS (2)
  1. TYSABRI [Suspect]
     Indication: MULTIPLE SCLEROSIS
     Route: 042
     Dates: start: 20070802
  2. AVONEX [Concomitant]
     Indication: MULTIPLE SCLEROSIS
     Route: 030

REACTIONS (14)
  - TOOTHACHE [None]
  - DRY MOUTH [None]
  - DISTURBANCE IN ATTENTION [None]
  - DRY EYE [None]
  - DRUG HYPERSENSITIVITY [None]
  - MUSCULOSKELETAL DISORDER [None]
  - GINGIVAL PAIN [None]
  - TOOTH INFECTION [None]
  - GOITRE [None]
  - DIZZINESS [None]
  - PAIN IN EXTREMITY [None]
  - EAR PAIN [None]
  - ARTHRALGIA [None]
  - FOOT FRACTURE [None]
